FAERS Safety Report 12319023 (Version 1)
Quarter: 2016Q2

REPORT INFORMATION
  Report Type: Spontaneous
  Country: US (occurrence: US)
  Receive Date: 20160429
  Receipt Date: 20160429
  Transmission Date: 20160815
  Serious: Yes (Other)
  Sender: FDA-Public Use
  Company Number: US-VALIDUS PHARMACEUTICALS LLC-US-2016VAL001370

PATIENT
  Age: 41 Year
  Sex: Male

DRUGS (2)
  1. MILRINONE LACTATE. [Suspect]
     Active Substance: MILRINONE LACTATE
     Indication: CONGESTIVE CARDIOMYOPATHY
     Dosage: UNK
  2. DOBUTAMINE [Suspect]
     Active Substance: DOBUTAMINE\DOBUTAMINE HYDROCHLORIDE
     Indication: POSITIVE CARDIAC INOTROPIC EFFECT
     Dosage: UNK

REACTIONS (5)
  - Eosinophilia [Recovered/Resolved]
  - Eosinophilic myocarditis [Recovered/Resolved]
  - Pyrexia [Recovered/Resolved]
  - Right ventricular failure [Recovered/Resolved]
  - Drug ineffective [Recovered/Resolved]
